FAERS Safety Report 17502819 (Version 1)
Quarter: 2020Q1

REPORT INFORMATION
  Report Type: Spontaneous
  Country: US (occurrence: US)
  Receive Date: 20200305
  Receipt Date: 20200305
  Transmission Date: 20200409
  Serious: Yes (Hospitalization, Disabling)
  Sender: FDA-Public Use
  Company Number: None

PATIENT
  Age: 62 Year
  Sex: Female
  Weight: 71.2 kg

DRUGS (2)
  1. PEMBROLIZUMAB. [Suspect]
     Active Substance: PEMBROLIZUMAB
     Indication: ENDOMETRIAL CANCER STAGE IV
     Dosage: ?          OTHER FREQUENCY:EVERY 3 WEEKS;?
     Route: 042
     Dates: start: 20191125
  2. LENVATINIB [Concomitant]
     Active Substance: LENVATINIB
     Dates: start: 20191125

REACTIONS (12)
  - Blindness [None]
  - Metastatic neoplasm [None]
  - Uterine cancer [None]
  - Pupillary reflex impaired [None]
  - Metastases to meninges [None]
  - Pulmonary embolism [None]
  - Optic neuritis [None]
  - Visual pathway disorder [None]
  - Pupillary disorder [None]
  - Papilloedema [None]
  - Optic neuropathy [None]
  - Visual acuity reduced [None]

NARRATIVE: CASE EVENT DATE: 20200212
